FAERS Safety Report 20987066 (Version 1)
Quarter: 2022Q2

REPORT INFORMATION
  Report Type: Other
  Country: None (occurrence: ES)
  Receive Date: 20220621
  Receipt Date: 20220621
  Transmission Date: 20220721
  Serious: Yes (Other)
  Sender: FDA-Public Use
  Company Number: ES-Nova Laboratories Limited-2130085

PATIENT
  Age: 39 Year
  Sex: Male

DRUGS (3)
  1. PURIXAN [Suspect]
     Active Substance: MERCAPTOPURINE
     Indication: Crohn^s disease
  2. AZATHIOPRINE [Suspect]
     Active Substance: AZATHIOPRINE
  3. BUDESONIDE [Suspect]
     Active Substance: BUDESONIDE
     Route: 048

REACTIONS (2)
  - Sialoadenitis [Recovering/Resolving]
  - Off label use [None]
